FAERS Safety Report 8354182-X (Version None)
Quarter: 2012Q2

REPORT INFORMATION
  Report Type: 
  Country: None (occurrence: None)
  Receive Date: 20120511
  Receipt Date: 20120508
  Transmission Date: 20120825
  Serious: Yes (Other)
  Sender: FDA-Public Use
  Company Number: PHHY2012IT039071

PATIENT
  Age: 47 Year
  Sex: Female

DRUGS (1)
  1. TACROLIMUS [Suspect]
     Indication: IMMUNOSUPPRESSION

REACTIONS (9)
  - ASTHENIA [None]
  - GRAFT DYSFUNCTION [None]
  - UMBILICAL HERNIA [None]
  - ABDOMINAL PAIN [None]
  - NEPHROLITHIASIS [None]
  - BLOOD CREATININE INCREASED [None]
  - PYREXIA [None]
  - HYPERPARATHYROIDISM [None]
  - HYPERPHOSPHATAEMIA [None]
